FAERS Safety Report 5965332-4 (Version None)
Quarter: 2008Q4

REPORT INFORMATION
  Report Type: 
  Country: None (occurrence: None)
  Receive Date: 20081125
  Receipt Date: 20081113
  Transmission Date: 20090506
  Serious: Yes (Hospitalization)
  Sender: FDA-Public Use
  Company Number: BR-ROCHE-597162

PATIENT
  Sex: Female

DRUGS (5)
  1. BONIVA [Suspect]
     Indication: OSTEOPOROSIS
     Route: 048
     Dates: start: 20080902
  2. METFORMIN HCL [Concomitant]
     Route: 048
     Dates: end: 20081101
  3. SYNTHROID [Concomitant]
     Route: 048
     Dates: end: 20081101
  4. ARADOIS H [Concomitant]
     Indication: HYPERTENSION
     Dosage: STRENGTH: 50 MG+12.5 MG
     Route: 048
     Dates: end: 20081101
  5. OSTEONUTRI [Concomitant]
     Indication: OSTEOPOROSIS
     Route: 048
     Dates: end: 20081101

REACTIONS (3)
  - DEPRESSED MOOD [None]
  - INFLUENZA [None]
  - UNEVALUABLE EVENT [None]
